FAERS Safety Report 8506630 (Version 10)
Quarter: 2013Q3

REPORT INFORMATION
  Report Type: Report from Study
  Country: US (occurrence: US)
  Receive Date: 20120412
  Receipt Date: 20130722
  Transmission Date: 20140515
  Serious: Yes (Hospitalization, Other)
  Sender: FDA-Public Use
  Company Number: US-ELI_LILLY_AND_COMPANY-US201203006019

PATIENT
  Age: 87 Year
  Sex: Female
  Weight: 89 kg

DRUGS (26)
  1. TERIPARATIDE [Suspect]
     Indication: OSTEOPOROSIS
     Dosage: 20 UG, QD
     Route: 058
     Dates: start: 201202, end: 20120327
  2. TERIPARATIDE [Suspect]
     Dosage: 20 UG, QD
     Route: 058
     Dates: start: 20120304
  3. TERIPARATIDE [Suspect]
     Dosage: 20 UG, QD
     Route: 058
     Dates: end: 20120327
  4. TERIPARATIDE [Suspect]
     Dosage: 20 UG, QD
     Route: 058
     Dates: start: 201207
  5. TERIPARATIDE [Suspect]
     Dosage: 20 UG, QD
     Route: 058
  6. TERIPARATIDE [Suspect]
     Dosage: 20 UG, QD
     Route: 058
  7. BUTRANS [Suspect]
     Dosage: 10 MG, UNK
  8. BUTRANS [Suspect]
     Dosage: 5 MG, UNK
  9. LIPITOR [Concomitant]
  10. SUCRALFATE [Concomitant]
     Indication: GASTRIC ULCER
     Dosage: UNK
     Dates: end: 20120403
  11. LISINOPRIL [Concomitant]
     Dosage: UNK
     Dates: end: 20120403
  12. FUROSEMIDE [Concomitant]
     Dosage: UNK
  13. WARFARIN [Concomitant]
     Dosage: UNK
     Dates: end: 20120403
  14. AMIODARONE [Concomitant]
  15. COUMADIN [Concomitant]
  16. COREG [Concomitant]
     Dosage: UNK
  17. GABAPENTIN [Concomitant]
     Dosage: UNK
  18. TRAMADOL [Concomitant]
     Dosage: UNK
  19. VITAMIN D [Concomitant]
     Dosage: UNK
  20. PROTONIX [Concomitant]
     Dosage: UNK
  21. HYDROCODONE BITARTRATE AND ACETAMINOPHEN [Concomitant]
     Dosage: UNK
  22. ZYRTEC [Concomitant]
     Dosage: UNK
  23. FISH OIL [Concomitant]
     Dosage: UNK
  24. MULTIVITAMIN [Concomitant]
     Dosage: UNK
  25. ASPIRIN [Concomitant]
     Dosage: UNK
  26. LACTULOSE [Concomitant]
     Dosage: UNK

REACTIONS (21)
  - Ulcer haemorrhage [Unknown]
  - Coagulation time prolonged [Recovered/Resolved]
  - Dehydration [Recovered/Resolved]
  - Renal failure acute [Unknown]
  - Cerebrovascular accident [Unknown]
  - Vomiting [Unknown]
  - Nausea [Unknown]
  - Muscular weakness [Unknown]
  - Fall [Recovered/Resolved]
  - Contusion [Recovering/Resolving]
  - Periorbital contusion [Recovering/Resolving]
  - Scratch [Recovering/Resolving]
  - Arthralgia [Recovering/Resolving]
  - Joint stiffness [Recovering/Resolving]
  - Pyrexia [Recovering/Resolving]
  - Viral infection [Recovering/Resolving]
  - Fall [Unknown]
  - Fall [Unknown]
  - Injection site bruising [Not Recovered/Not Resolved]
  - Blood blister [Unknown]
  - Dizziness [Not Recovered/Not Resolved]
